FAERS Safety Report 7850862 (Version 2)
Quarter: 2012Q4

REPORT INFORMATION
  Report Type: Spontaneous
  Country: US (occurrence: None)
  Receive Date: 20110215
  Receipt Date: 20120918
  Transmission Date: 20130627
  Serious: Yes (Other)
  Sender: FDA-Public Use
  Company Number: AUR-APL-2011-00440

PATIENT
  Age: 38 Year
  Sex: Female

DRUGS (2)
  1. CEFUROXIME AXETIL [Suspect]
     Indication: LYME DISEASE
     Dosage: 2000 mg (1000 mg,2 in 1 D),Unknown
  2. DOXYCYCLINE [Concomitant]

REACTIONS (2)
  - Choking [None]
  - Product solubility abnormal [None]
